FAERS Safety Report 17285631 (Version 4)
Quarter: 2020Q1

REPORT INFORMATION
  Report Type: Report from Study
  Country: US (occurrence: US)
  Receive Date: 20200117
  Receipt Date: 20200305
  Transmission Date: 20200409
  Serious: No
  Sender: FDA-Public Use
  Company Number: NVSC2020US009073

PATIENT
  Age: 72 Year
  Sex: Male

DRUGS (1)
  1. COSENTYX [Suspect]
     Active Substance: SECUKINUMAB
     Indication: PSORIASIS
     Dosage: UNK
     Route: 065

REACTIONS (8)
  - Dyspnoea [Unknown]
  - Asthma [Unknown]
  - Fatigue [Unknown]
  - Cough [Unknown]
  - Wheezing [Unknown]
  - Nasal congestion [Unknown]
  - Malaise [Unknown]
  - Sleep disorder [Unknown]
